FAERS Safety Report 8923994 (Version 2)
Quarter: 2012Q4

REPORT INFORMATION
  Report Type: 
  Country: JP (occurrence: JP)
  Receive Date: 20121126
  Receipt Date: 20121220
  Transmission Date: 20130627
  Serious: Yes (Hospitalization)
  Sender: FDA-Public Use
  Company Number: JP-ELI_LILLY_AND_COMPANY-JP201211004234

PATIENT
  Age: 89 Year
  Sex: Female
  Weight: 35.1 kg

DRUGS (2)
  1. FORTEO [Suspect]
     Indication: OSTEOPOROSIS
     Dosage: 20 ug, qd
     Route: 058
  2. LANDSEN [Concomitant]
     Dosage: 1 g, qd
     Route: 048
     Dates: start: 20060407

REACTIONS (2)
  - Hyponatraemia [Recovering/Resolving]
  - Decreased appetite [Recovering/Resolving]
